FAERS Safety Report 13695384 (Version 1)
Quarter: 2017Q2

REPORT INFORMATION
  Report Type: Spontaneous
  Country: US (occurrence: US)
  Receive Date: 20170627
  Receipt Date: 20170627
  Transmission Date: 20170830
  Serious: No
  Sender: FDA-Public Use
  Company Number: US-ALLERGAN-1703153US

PATIENT
  Sex: Female

DRUGS (1)
  1. CRINONE [Suspect]
     Active Substance: PROGESTERONE
     Indication: HORMONE REPLACEMENT THERAPY
     Route: 067

REACTIONS (2)
  - Arthralgia [Unknown]
  - Off label use [Unknown]
